FAERS Safety Report 9226879 (Version 1)
Quarter: 2013Q1

REPORT INFORMATION
  Report Type: Spontaneous
  Country: US (occurrence: None)
  Receive Date: 20120912
  Receipt Date: 20120912
  Transmission Date: 20140127
  Serious: No
  Sender: FDA-Public Use
  Company Number: 2012SP027805

PATIENT
  Age: 59 Year
  Sex: Male

DRUGS (5)
  1. VICTRELIS 200MG MERCK [Suspect]
     Indication: HEPATITIS C
     Route: 048
  2. PEGASYS [Suspect]
     Dosage: 180 MCG;QW;
  3. AMLODIPINE [Concomitant]
  4. LORATADINE [Concomitant]
  5. RIBASPHERE [Suspect]

REACTIONS (5)
  - Fatigue [None]
  - Rash [None]
  - Nausea [None]
  - Diarrhoea [None]
  - Haemoglobin decreased [None]
